FAERS Safety Report 5418437-0 (Version None)
Quarter: 2007Q3

REPORT INFORMATION
  Report Type: 
  Country: None (occurrence: None)
  Receive Date: 20070718
  Receipt Date: 20070418
  Transmission Date: 20080115
  Serious: Yes (Hospitalization, Other)
  Sender: FDA-Public Use
  Company Number: 2006095023

PATIENT
  Age: 67 Year
  Sex: Female
  Weight: 68 kg

DRUGS (5)
  1. CELEBREX [Suspect]
     Indication: ARTHRITIS
     Dosage: 200 MG
     Dates: start: 20000625, end: 20041004
  2. CELEBREX [Suspect]
     Indication: PAIN
     Dosage: 200 MG
     Dates: start: 20000625, end: 20041004
  3. BEXTRA [Suspect]
     Indication: ARTHRITIS
     Dosage: 10 MG
     Dates: end: 20040916
  4. BEXTRA [Suspect]
     Indication: PAIN
     Dosage: 10 MG
     Dates: end: 20040916
  5. VIOXX [Suspect]
     Indication: DRUG USE FOR UNKNOWN INDICATION
     Dates: start: 19990501, end: 20030401

REACTIONS (1)
  - MYOCARDIAL INFARCTION [None]
